FAERS Safety Report 6818837-8 (Version None)
Quarter: 2010Q2

REPORT INFORMATION
  Report Type: 
  Country: None (occurrence: None)
  Receive Date: 20100630
  Receipt Date: 20100617
  Transmission Date: 20101027
  Serious: Yes (Death, Hospitalization)
  Sender: FDA-Public Use
  Company Number: 2010076222

PATIENT
  Age: 98 Year
  Sex: Male

DRUGS (3)
  1. FRAGMIN [Suspect]
     Indication: ATRIAL FIBRILLATION
     Dosage: 1 UNIT DAILY, SUBCUTANEOUS
     Route: 058
     Dates: start: 20100401, end: 20100421
  2. LATANOPROST [Concomitant]
  3. PLACTIDIL (PICOTAMIDE) [Concomitant]

REACTIONS (3)
  - HAEMOLYSIS [None]
  - LIVER FUNCTION TEST ABNORMAL [None]
  - THROMBOCYTOPENIA [None]
